FAERS Safety Report 19449693 (Version 8)
Quarter: 2022Q1

REPORT INFORMATION
  Report Type: Report from Study
  Country: GB (occurrence: GB)
  Receive Date: 20210622
  Receipt Date: 20220323
  Transmission Date: 20220423
  Serious: Yes (Hospitalization)
  Sender: FDA-Public Use
  Company Number: GB-GW PHARMA-202106GBGW02945

PATIENT

DRUGS (8)
  1. CANNABIDIOL [Suspect]
     Active Substance: CANNABIDIOL
     Indication: Lennox-Gastaut syndrome
     Dosage: 10.3 KG/DAY, 150 MILLIGRAM, BID
     Route: 048
     Dates: start: 20200422
  2. CANNABIDIOL [Suspect]
     Active Substance: CANNABIDIOL
     Dosage: START DATE: 20 APR 2021, 18 MILLIGRAM/KILOGRAM, QD
     Route: 048
  3. VALPROATE SODIUM [Suspect]
     Active Substance: VALPROATE SODIUM
     Indication: Product used for unknown indication
     Dosage: 440 MILLIGRAM, QD
     Route: 065
     Dates: start: 2020, end: 2020
  4. VALPROATE SODIUM [Suspect]
     Active Substance: VALPROATE SODIUM
     Dosage: UNK, REDUCTION OF THE DOSE STARTED
     Route: 065
     Dates: start: 202009, end: 202011
  5. VALPROATE SODIUM [Suspect]
     Active Substance: VALPROATE SODIUM
     Dosage: 300 MILLIGRAM, QD
     Route: 065
     Dates: start: 202011, end: 202107
  6. VALPROATE SODIUM [Suspect]
     Active Substance: VALPROATE SODIUM
     Dosage: 240 MILLIGRAM, QD (DOSE REDUCED FURTHER)
     Route: 065
     Dates: start: 202107
  7. CLOBAZAM [Concomitant]
     Active Substance: CLOBAZAM
     Indication: Product used for unknown indication
     Dosage: 15 MILLIGRAM, QD (5 MG AM AND 10 MG PM)
     Route: 065
  8. ZONISAMIDE [Concomitant]
     Active Substance: ZONISAMIDE
     Indication: Product used for unknown indication
     Dosage: 75 MILLIGRAM, QD
     Route: 065

REACTIONS (3)
  - COVID-19 [Unknown]
  - Platelet count decreased [Recovered/Resolved]
  - Platelet count decreased [Not Recovered/Not Resolved]

NARRATIVE: CASE EVENT DATE: 20200921
